FAERS Safety Report 10267396 (Version 1)
Quarter: 2014Q2

REPORT INFORMATION
  Report Type: Spontaneous
  Country: US (occurrence: None)
  Receive Date: 20140626
  Receipt Date: 20140626
  Transmission Date: 20141212
  Serious: Yes (Disabling)
  Sender: FDA-Public Use
  Company Number: None

PATIENT
  Age: 35 Year
  Sex: Female
  Weight: 69.85 kg

DRUGS (1)
  1. MIRENA BAYER [Suspect]
     Indication: CONTRACEPTION
     Dosage: 1 IUD, 5 YEARS, VAGINAL
     Route: 067
     Dates: start: 20121101, end: 20140625

REACTIONS (26)
  - Dyspnoea exertional [None]
  - Oedema peripheral [None]
  - Oedema peripheral [None]
  - Localised oedema [None]
  - Face oedema [None]
  - Upper-airway cough syndrome [None]
  - Asthma [None]
  - Multiple allergies [None]
  - Urticaria [None]
  - Dry eye [None]
  - Adnexa uteri pain [None]
  - Blood glucose decreased [None]
  - Insomnia [None]
  - Anxiety [None]
  - Arthralgia [None]
  - Fatigue [None]
  - Weight increased [None]
  - Fungal infection [None]
  - Periodontal disease [None]
  - Artificial crown procedure [None]
  - Tooth repair [None]
  - Endodontic procedure [None]
  - Toothache [None]
  - Pain in jaw [None]
  - Gingival bleeding [None]
  - Eye disorder [None]
